FAERS Safety Report 20595594 (Version 1)
Quarter: 2022Q1

REPORT INFORMATION
  Report Type: Spontaneous
  Country: US (occurrence: None)
  Receive Date: 20220314
  Receipt Date: 20220314
  Transmission Date: 20220423
  Serious: Yes (Hospitalization, Disabling)
  Sender: FDA-Public Use
  Company Number: None

PATIENT
  Age: 54 Year
  Sex: Female
  Weight: 54.9 kg

DRUGS (3)
  1. EUTHYROX [Suspect]
     Active Substance: LEVOTHYROXINE SODIUM
     Indication: Hypothyroidism
     Dosage: OTHER STRENGTH : MCG;?FREQUENCY : DAILY;?
     Route: 048
     Dates: start: 20211201, end: 20220311
  2. BC (ASPIRIN\CAFFEINE) [Concomitant]
     Active Substance: ASPIRIN\CAFFEINE
  3. BIOTIN [Concomitant]
     Active Substance: BIOTIN

REACTIONS (12)
  - Product substitution issue [None]
  - Dizziness [None]
  - Chest pain [None]
  - Palpitations [None]
  - Dizziness [None]
  - Tri-iodothyronine increased [None]
  - Blood urea increased [None]
  - Blood creatine increased [None]
  - Blood potassium decreased [None]
  - Troponin I decreased [None]
  - Globulins increased [None]
  - Protein total increased [None]

NARRATIVE: CASE EVENT DATE: 20211201
